FAERS Safety Report 8613537-6 (Version None)
Quarter: 2012Q3

REPORT INFORMATION
  Report Type: 
  Country: None (occurrence: None)
  Receive Date: 20120823
  Receipt Date: 20120808
  Transmission Date: 20120928
  Serious: Yes (Other)
  Sender: FDA-Public Use
  Company Number: AU-009507513-2012SP025305

PATIENT

DRUGS (1)
  1. CELESTONE SOLUSPAN [Suspect]
     Indication: TENDONITIS
     Dosage: 11.4 MG, ONCE
     Route: 065
     Dates: start: 20110901

REACTIONS (2)
  - INJECTION SITE NECROSIS [None]
  - INJECTION SITE PAIN [None]
